FAERS Safety Report 8470828-X (Version None)
Quarter: 2012Q2

REPORT INFORMATION
  Report Type: 
  Country: None (occurrence: None)
  Receive Date: 20120627
  Receipt Date: 20120621
  Transmission Date: 20120825
  Serious: Yes (Other)
  Sender: FDA-Public Use
  Company Number: US-PFIZER INC-2012149876

PATIENT
  Age: 60 Year
  Sex: Female

DRUGS (4)
  1. ENBREL [Suspect]
  2. HUMIRA [Suspect]
     Dosage: 40MG/0.8 ML PEN
  3. CELEBREX [Suspect]
     Indication: PAIN
  4. TRAMADOL [Concomitant]
     Indication: PAIN

REACTIONS (11)
  - JOINT STIFFNESS [None]
  - WEIGHT INCREASED [None]
  - PAIN [None]
  - ULCER [None]
  - DRUG INEFFECTIVE [None]
  - OEDEMA PERIPHERAL [None]
  - DISORIENTATION [None]
  - URTICARIA [None]
  - URINARY TRACT INFECTION [None]
  - INJECTION SITE PAIN [None]
  - INCONTINENCE [None]
